FAERS Safety Report 7523333-9 (Version None)
Quarter: 2011Q2

REPORT INFORMATION
  Report Type: 
  Country: None (occurrence: None)
  Receive Date: 20110603
  Receipt Date: 20110524
  Transmission Date: 20111010
  Serious: Yes (Death, Hospitalization)
  Sender: FDA-Public Use
  Company Number: A0924021A

PATIENT
  Age: 80 Year
  Sex: Female
  Weight: 62.3 kg

DRUGS (12)
  1. COMBIVENT [Concomitant]
  2. SEREVENT [Suspect]
     Indication: ASTHMA
     Route: 055
     Dates: start: 19980624
  3. SYNTHROID [Concomitant]
  4. LISINOPRIL [Concomitant]
  5. ADVAIR DISKUS 100/50 [Suspect]
     Indication: ASTHMA
     Dosage: 1PUFF TWICE PER DAY
     Route: 055
     Dates: start: 20010401, end: 20090101
  6. ALBUTEROL SULFATE AUTOHALER [Concomitant]
  7. LASIX [Concomitant]
  8. OXYGEN [Concomitant]
  9. SPIRIVA [Concomitant]
  10. LEVOXYL [Concomitant]
  11. CARDIZEM [Concomitant]
  12. FLOVENT [Concomitant]

REACTIONS (8)
  - ACUTE RESPIRATORY DISTRESS SYNDROME [None]
  - THROMBOCYTOSIS [None]
  - DISSEMINATED INTRAVASCULAR COAGULATION [None]
  - ASTHMA [None]
  - SEPSIS [None]
  - PNEUMONIA [None]
  - ACUTE RESPIRATORY FAILURE [None]
  - CARDIAC FAILURE [None]
